FAERS Safety Report 5491355-8 (Version None)
Quarter: 2007Q4

REPORT INFORMATION
  Report Type: 
  Country: None (occurrence: None)
  Receive Date: 20071019
  Receipt Date: 20071012
  Transmission Date: 20080405
  Serious: Yes (Hospitalization)
  Sender: FDA-Public Use
  Company Number: US-ALLERGAN-0710622US

PATIENT
  Sex: Female

DRUGS (2)
  1. BOTOX [Suspect]
     Indication: DROOLING
     Dosage: 25 UNITS, SINGLE
     Route: 030
     Dates: start: 20070912, end: 20070912
  2. BOTOX [Suspect]
     Indication: MUCOPOLYSACCHARIDOSIS IV

REACTIONS (8)
  - ASPIRATION [None]
  - CONSTIPATION [None]
  - DEHYDRATION [None]
  - DYSPHAGIA [None]
  - FACIAL PARESIS [None]
  - SALIVARY HYPERSECRETION [None]
  - URINARY TRACT INFECTION [None]
  - VOMITING [None]
